FAERS Safety Report 10146016 (Version 2)
Quarter: 2014Q2

REPORT INFORMATION
  Report Type: Report from Study
  Country: US (occurrence: US)
  Receive Date: 20140501
  Receipt Date: 20140507
  Transmission Date: 20141212
  Serious: Yes (Other)
  Sender: FDA-Public Use
  Company Number: PHEH2014US008600

PATIENT
  Sex: Male

DRUGS (1)
  1. TOBI PODHALER [Suspect]
     Indication: CYSTIC FIBROSIS
     Dosage: 112 MG, BID
     Route: 055

REACTIONS (6)
  - Pneumothorax [Recovered/Resolved]
  - Hypersensitivity [Recovered/Resolved]
  - Pulmonary function test decreased [Recovered/Resolved]
  - Atelectasis [Unknown]
  - Infective pulmonary exacerbation of cystic fibrosis [Unknown]
  - Cough [Unknown]
